FAERS Safety Report 5660410-1 (Version None)
Quarter: 2008Q1

REPORT INFORMATION
  Report Type: 
  Country: None (occurrence: None)
  Receive Date: 20080311
  Receipt Date: 20080307
  Transmission Date: 20080703
  Serious: Yes (Life-Threatening, Hospitalization)
  Sender: FDA-Public Use
  Company Number: AU-ASTRAZENECA-2008AP00312

PATIENT
  Age: 79 Year
  Sex: Female
  Weight: 50 kg

DRUGS (5)
  1. CRESTOR [Suspect]
     Route: 048
     Dates: start: 20071205, end: 20080102
  2. ASTRIX [Concomitant]
     Indication: DEMENTIA
     Route: 048
  3. FRUSID [Concomitant]
     Indication: HYPERTENSION
     Route: 048
  4. NORVASC [Concomitant]
     Indication: HYPERTENSION
     Route: 048
  5. ASPIRIN [Concomitant]
     Route: 048

REACTIONS (2)
  - OVERDOSE [None]
  - RHABDOMYOLYSIS [None]
